FAERS Safety Report 6534896 (Version 14)
Quarter: 2013Q3

REPORT INFORMATION
  Report Type: Spontaneous
  Country: US (occurrence: US)
  Receive Date: 20080125
  Receipt Date: 20130808
  Transmission Date: 20140515
  Serious: Yes (Death, Hospitalization, Other)
  Sender: FDA-Public Use
  Company Number: PHEH2008US00987

PATIENT
  Age: 55 Year
  Sex: Female

DRUGS (64)
  1. TYKERB [Concomitant]
     Indication: BREAST CANCER
     Route: 048
  2. BEXTRA [Concomitant]
     Dosage: 10 MG, BID
     Route: 048
  3. ASPIRIN ^BAYER^ [Concomitant]
     Dosage: 325 MG, QD
     Route: 048
  4. ADRIAMYCIN [Concomitant]
  5. TAXOL [Concomitant]
  6. TAMOXIFEN [Concomitant]
  7. ANASTROZOLE [Concomitant]
  8. NAVELBINE ^ASTA MEDICA^ [Concomitant]
  9. XELODA [Concomitant]
  10. CYTOXAN [Concomitant]
  11. Z-PAK [Concomitant]
  12. PROCRIT                            /00909301/ [Concomitant]
  13. AUGMENTIN                               /SCH/ [Concomitant]
  14. TEMOVATE [Concomitant]
  15. IBUPROFEN [Concomitant]
  16. ALPRAZOLAM [Concomitant]
  17. PAMIDRONATE DISODIUM [Concomitant]
  18. METHOTREXATE [Concomitant]
  19. BENADRYL /OLD FORM/ [Concomitant]
  20. CEFTIN [Concomitant]
  21. PROTONIX ^PHARMACIA^ [Concomitant]
  22. KEFLEX                                  /UNK/ [Concomitant]
  23. ULTRAM [Concomitant]
  24. CLARITIN [Concomitant]
  25. DECADRON                                /CAN/ [Concomitant]
  26. ATROVENT [Concomitant]
  27. ALBUTEROL [Concomitant]
  28. COMBIVENT                               /GFR/ [Concomitant]
  29. EPOGEN [Concomitant]
  30. DEXAMETHASONE [Concomitant]
  31. CARAFATE [Concomitant]
  32. RAMIPRIL [Concomitant]
  33. MICRO-K [Concomitant]
  34. CALCIUM [Concomitant]
  35. AMBIEN [Concomitant]
  36. AREDIA [Suspect]
     Indication: METASTASES TO BONE
     Dosage: 90 MG, QMO
     Route: 042
  37. ZOMETA [Suspect]
     Indication: METASTASES TO BONE
     Dosage: 4 MG, QMO
     Route: 042
     Dates: end: 20060307
  38. ZOMETA [Suspect]
     Indication: BONE LOSS
  39. FULVESTRANT [Suspect]
     Dosage: 250 MG, QD
     Route: 048
  40. CHEMOTHERAPEUTICS NOS [Concomitant]
  41. DOXIL [Concomitant]
  42. NEXIUM [Concomitant]
     Dosage: 20 MG, BID
     Route: 048
  43. COREG [Concomitant]
     Dosage: 6.25 MG, BID
     Route: 048
  44. ALTACE [Concomitant]
     Dosage: 2.5 MG, QD
     Route: 048
  45. TYLENOL ARTHRITIS [Concomitant]
  46. MULTIVITAMINS [Concomitant]
  47. VITAMIN A [Concomitant]
  48. VITAMIN B [Concomitant]
  49. VITAMIN B6 [Concomitant]
  50. VITAMIN D [Concomitant]
  51. VITAMIN E [Concomitant]
  52. BABY ASPIRIN [Concomitant]
  53. LIPITOR                                 /NET/ [Concomitant]
  54. GEMZAR [Concomitant]
  55. LEVAQUIN [Concomitant]
  56. ARIMIDEX ^ASTRAZENECA^ [Concomitant]
  57. ALEVE                              /00256202/ [Concomitant]
  58. NASONEX [Concomitant]
  59. CELEBREX [Concomitant]
  60. ATIVAN [Concomitant]
  61. NEURONTIN [Concomitant]
  62. AVELOX [Concomitant]
  63. FLONASE [Concomitant]
  64. HERCEPTIN ^GENENTECH^ [Concomitant]

REACTIONS (96)
  - Malignant neoplasm progression [Fatal]
  - Metastases to liver [Fatal]
  - Metastases to lung [Fatal]
  - Metastases to central nervous system [Fatal]
  - Metastases to bone [Fatal]
  - Metastases to lymph nodes [Fatal]
  - Pneumothorax [Unknown]
  - Gastrointestinal haemorrhage [Unknown]
  - Abdominal pain [Unknown]
  - Convulsion [Unknown]
  - Osteonecrosis of jaw [Unknown]
  - Dyspnoea [Unknown]
  - Infection [Unknown]
  - Injury [Unknown]
  - Disability [Unknown]
  - Pain [Unknown]
  - Anxiety [Unknown]
  - Anhedonia [Unknown]
  - Dermal cyst [Unknown]
  - Gastrooesophageal reflux disease [Unknown]
  - Cardiomegaly [Unknown]
  - Immunoglobulins decreased [Unknown]
  - Hypercholesterolaemia [Unknown]
  - Sinusitis [Unknown]
  - Pain in jaw [Unknown]
  - Denture wearer [Unknown]
  - Chronic obstructive pulmonary disease [Unknown]
  - Escherichia sepsis [Unknown]
  - Hypotension [Unknown]
  - Somnolence [Unknown]
  - General physical health deterioration [Fatal]
  - Weight decreased [Unknown]
  - Bronchitis [Unknown]
  - Productive cough [Unknown]
  - Ischaemic cardiomyopathy [Unknown]
  - Nausea [Unknown]
  - Oedema peripheral [Unknown]
  - Back pain [Unknown]
  - Hypoaesthesia [Unknown]
  - Dizziness [Unknown]
  - Chest pain [Unknown]
  - Heart rate irregular [Unknown]
  - Headache [Unknown]
  - Herpes zoster [Recovered/Resolved]
  - Palpitations [Unknown]
  - Epigastric discomfort [Unknown]
  - Musculoskeletal pain [Unknown]
  - Oropharyngeal pain [Unknown]
  - Ear pain [Unknown]
  - Tachycardia [Unknown]
  - Arthralgia [Unknown]
  - Pulmonary air leakage [Unknown]
  - Vomiting [Unknown]
  - Faeces discoloured [Unknown]
  - Occult blood positive [Unknown]
  - Abscess [Unknown]
  - Bone pain [Unknown]
  - Pulmonary congestion [Unknown]
  - Ear disorder [Unknown]
  - Localised infection [Unknown]
  - Aortic valve incompetence [Unknown]
  - Mitral valve incompetence [Unknown]
  - Tricuspid valve incompetence [Unknown]
  - Diastolic dysfunction [Unknown]
  - Cough [Unknown]
  - Dilatation ventricular [Unknown]
  - Blood glucose decreased [Unknown]
  - Rheumatoid arthritis [Unknown]
  - Costochondritis [Unknown]
  - Fungal infection [Unknown]
  - Decreased appetite [Unknown]
  - Ascites [Unknown]
  - Wound [Unknown]
  - Pleural effusion [Unknown]
  - Rash [Unknown]
  - Paraesthesia [Unknown]
  - Fall [Unknown]
  - Adenocarcinoma [Unknown]
  - Anaemia [Unknown]
  - Skin exfoliation [Unknown]
  - Hyperkeratosis [Unknown]
  - Acanthosis [Unknown]
  - Drug intolerance [Unknown]
  - Emphysema [Unknown]
  - Pneumonia [Unknown]
  - Varicose vein [Unknown]
  - Unresponsive to stimuli [Unknown]
  - Alopecia [Unknown]
  - Disorientation [Unknown]
  - Arthritis [Unknown]
  - Hypoalbuminaemia [Unknown]
  - Graft versus host disease [Unknown]
  - Febrile neutropenia [Unknown]
  - Splenomegaly [Unknown]
  - Hyperadrenalism [Unknown]
  - Hydronephrosis [Unknown]
